FAERS Safety Report 5512278-1 (Version None)
Quarter: 2007Q4

REPORT INFORMATION
  Report Type: 
  Country: None (occurrence: None)
  Receive Date: 20071112
  Receipt Date: 20070920
  Transmission Date: 20080405
  Serious: No
  Sender: FDA-Public Use
  Company Number: A0680186A

PATIENT
  Age: 4 Year
  Sex: Female
  Weight: 17.7 kg

DRUGS (2)
  1. VERAMYST [Suspect]
     Dosage: 1SPR PER DAY
     Route: 045
  2. CLARITIN [Concomitant]
     Dosage: 1TSP PER DAY
     Route: 048

REACTIONS (3)
  - EPISTAXIS [None]
  - HEADACHE [None]
  - NASAL DISORDER [None]
